FAERS Safety Report 21348305 (Version 2)
Quarter: 2022Q3

REPORT INFORMATION
  Report Type: Spontaneous
  Country: US (occurrence: US)
  Receive Date: 20220919
  Receipt Date: 20220923
  Transmission Date: 20221027
  Serious: Yes (Hospitalization)
  Sender: FDA-Public Use
  Company Number: US-BRISTOL-MYERS SQUIBB COMPANY-2022-107415

PATIENT
  Age: 64 Year
  Sex: Male
  Weight: 68.49 kg

DRUGS (1)
  1. REVLIMID [Suspect]
     Active Substance: LENALIDOMIDE
     Indication: Plasma cell myeloma
     Dosage: DAILY ON DAYS 1-21 EVERY 28DAYS, 21 DAYS ON 7 DAYS OFF
     Route: 048
     Dates: start: 20220725

REACTIONS (1)
  - Diarrhoea [Recovered/Resolved]
